FAERS Safety Report 9110211 (Version 2)
Quarter: 2013Q1

REPORT INFORMATION
  Report Type: Spontaneous
  Country: AT (occurrence: AT)
  Receive Date: 20130222
  Receipt Date: 20130325
  Transmission Date: 20140127
  Serious: Yes (Hospitalization)
  Sender: FDA-Public Use
  Company Number: AT-JNJFOC-20130204789

PATIENT
  Age: 69 Year
  Sex: Female
  Weight: 78.75 kg

DRUGS (21)
  1. RISPERDAL [Suspect]
     Indication: PRODUCT USED FOR UNKNOWN INDICATION
     Dosage: 2, 5MG
     Route: 065
     Dates: start: 20130107, end: 20130120
  2. RISPERDAL [Suspect]
     Indication: PRODUCT USED FOR UNKNOWN INDICATION
     Dosage: 0, 5MG
     Route: 065
     Dates: start: 20130121, end: 20130121
  3. RISPERDAL [Suspect]
     Indication: PRODUCT USED FOR UNKNOWN INDICATION
     Route: 065
     Dates: start: 201211, end: 20130106
  4. HALDOL [Suspect]
     Indication: PRODUCT USED FOR UNKNOWN INDICATION
     Dosage: 1, 5MG
     Route: 065
     Dates: start: 20130108, end: 20130109
  5. XANOR [Suspect]
     Indication: ANXIETY
     Dosage: 1, 5MG
     Route: 065
  6. XANOR [Suspect]
     Indication: ANXIETY
     Route: 065
     Dates: start: 20130114, end: 20130128
  7. BURONIL [Suspect]
     Indication: PRODUCT USED FOR UNKNOWN INDICATION
     Route: 065
     Dates: start: 20130125, end: 20130125
  8. BURONIL [Suspect]
     Indication: PRODUCT USED FOR UNKNOWN INDICATION
     Dosage: 1, 5MG
     Route: 065
     Dates: start: 20130121, end: 20130124
  9. ZOLDEM [Concomitant]
     Route: 065
     Dates: start: 201211
  10. MIRTABENE [Concomitant]
     Route: 065
     Dates: start: 20130115
  11. MIRTABENE [Concomitant]
     Route: 065
     Dates: start: 20130111, end: 20130114
  12. LYRICA [Concomitant]
     Route: 065
     Dates: start: 20130122
  13. LYRICA [Concomitant]
     Route: 065
     Dates: start: 20130121, end: 20130121
  14. NEXIUM [Concomitant]
     Route: 065
     Dates: start: 201211
  15. ZOFRAN [Concomitant]
     Route: 065
     Dates: start: 201211
  16. MOTILIUM [Concomitant]
     Route: 065
     Dates: start: 201212
  17. DIAMICRON MR [Concomitant]
     Route: 065
     Dates: start: 201211
  18. JANUVIA [Concomitant]
     Route: 065
     Dates: start: 201211
  19. BLOPRESS [Concomitant]
     Route: 065
     Dates: start: 201212
  20. CONCOR COR [Concomitant]
     Route: 065
     Dates: start: 201212
  21. THROMBO ASS [Concomitant]
     Route: 065
     Dates: start: 201212

REACTIONS (5)
  - Hyperprolactinaemia [Unknown]
  - Extrapyramidal disorder [Recovered/Resolved]
  - Condition aggravated [Unknown]
  - Anxiety [Unknown]
  - Nausea [Unknown]
